FAERS Safety Report 9889135 (Version 1)
Quarter: 2014Q1

REPORT INFORMATION
  Report Type: Spontaneous
  Country: US (occurrence: US)
  Receive Date: 20140211
  Receipt Date: 20140211
  Transmission Date: 20141002
  Serious: Yes (Other)
  Sender: FDA-Public Use
  Company Number: US-FRI-1000054110

PATIENT
  Age: 22 Year
  Sex: Female
  Weight: 96 kg

DRUGS (6)
  1. LINZESS [Suspect]
     Indication: NEUROGENIC BOWEL
     Dosage: 145 MCG
     Dates: start: 2013
  2. LEVOTHYROXINE [Concomitant]
     Indication: HYPOTHYROIDISM
  3. DITROPAN [Concomitant]
     Indication: URINARY INCONTINENCE
  4. NEURONTIN [Concomitant]
     Indication: NEURALGIA
  5. ADDERALL [Concomitant]
     Indication: NARCOLEPSY
     Dosage: 20 MG
  6. SPIRONOLACTONE [Concomitant]

REACTIONS (2)
  - Abnormal loss of weight [Not Recovered/Not Resolved]
  - Off label use [Not Recovered/Not Resolved]
